FAERS Safety Report 4840139-X (Version None)
Quarter: 2005Q4

REPORT INFORMATION
  Report Type: 
  Country: None (occurrence: None)
  Receive Date: 20051125
  Receipt Date: 20051116
  Transmission Date: 20060501
  Serious: Yes (Hospitalization, Other)
  Sender: FDA-Public Use
  Company Number: 200508110

PATIENT
  Age: 53 Year
  Sex: Female
  Weight: 54.4316 kg

DRUGS (3)
  1. BOTOX [Suspect]
     Indication: SKIN WRINKLING
     Dates: start: 19980101
  2. BOTOX [Suspect]
     Indication: SKIN WRINKLING
     Dosage: 67 UNITS ONCE IM
     Route: 030
     Dates: start: 20050901, end: 20050901
  3. PREMPRO [Concomitant]

REACTIONS (6)
  - BLEPHAROPLASTY [None]
  - EYE LASER SURGERY [None]
  - IMPAIRED WORK ABILITY [None]
  - RETINAL DETACHMENT [None]
  - VISUAL DISTURBANCE [None]
  - VISUAL FIELD DEFECT [None]
